FAERS Safety Report 8058849-2 (Version None)
Quarter: 2012Q1

REPORT INFORMATION
  Report Type: 
  Country: None (occurrence: None)
  Receive Date: 20120120
  Receipt Date: 20111216
  Transmission Date: 20120608
  Serious: Yes (Death, Hospitalization)
  Sender: FDA-Public Use
  Company Number: US-BRISTOL-MYERS SQUIBB COMPANY-16241291

PATIENT
  Age: 68 Year
  Sex: Male

DRUGS (12)
  1. YERVOY [Suspect]
     Indication: METASTATIC MALIGNANT MELANOMA
     Dates: start: 20110826, end: 20111018
  2. ACETAMINOPHEN [Concomitant]
     Dosage: TABS
     Dates: start: 20111006
  3. PREDNISONE [Concomitant]
     Route: 048
  4. GLIPIZIDE [Concomitant]
     Dosage: TABS
     Route: 048
     Dates: start: 20111006
  5. GLYBURIDE AND METFORMIN HYDROCHLORIDE [Concomitant]
     Dosage: 1DF:5MG-500MG
     Route: 048
     Dates: start: 20111006
  6. FUROSEMIDE [Concomitant]
     Dosage: FUROSEMIDE40MG TAB
     Route: 048
     Dates: start: 20111006
  7. LANTUS [Concomitant]
     Dosage: 1DF:100UNIT/ML
     Route: 058
     Dates: start: 20111006
  8. CARVEDILOL [Concomitant]
     Route: 048
     Dates: start: 20111014
  9. DEXAMETHASONE TAB [Concomitant]
     Route: 048
     Dates: start: 20111018
  10. ISOSORBIDE MONONITRATE [Concomitant]
     Dosage: ISOSORBIDE MONONITRATE ER TAB
     Route: 048
     Dates: start: 20111006
  11. ASPIRIN [Concomitant]
     Dosage: 1DF:2 TAB 81 MG EFFERVESCENT TAB
     Route: 048
     Dates: start: 20111006
  12. KLOR-CON [Concomitant]
     Dosage: PACKET
     Route: 048
     Dates: start: 20111006

REACTIONS (2)
  - INTESTINAL PERFORATION [None]
  - ENTEROCOLITIS [None]
